FAERS Safety Report 19424915 (Version 1)
Quarter: 2021Q2

REPORT INFORMATION
  Report Type: Other
  Country: CA (occurrence: CA)
  Receive Date: 20210617
  Receipt Date: 20210617
  Transmission Date: 20210717
  Serious: Yes (Life-Threatening, Other)
  Sender: FDA-Public Use
  Company Number: CA-APOTEX-2021AP014112

PATIENT
  Age: 60 Year
  Sex: Male
  Weight: 63 kg

DRUGS (1)
  1. APO?SOTALOL 80MG TABLETS [Suspect]
     Active Substance: SOTALOL HYDROCHLORIDE
     Indication: ATRIAL FIBRILLATION
     Dosage: 80 MILLIGRAM, BID
     Route: 048

REACTIONS (3)
  - Torsade de pointes [Recovering/Resolving]
  - Cardio-respiratory arrest [Recovering/Resolving]
  - Electrocardiogram QT prolonged [Recovering/Resolving]
